FAERS Safety Report 11136769 (Version 1)
Quarter: 2015Q2

REPORT INFORMATION
  Report Type: Spontaneous
  Country: US (occurrence: US)
  Receive Date: 20150526
  Receipt Date: 20150526
  Transmission Date: 20150821
  Serious: Yes (Hospitalization)
  Sender: FDA-Public Use
  Company Number: US-MALLINCKRODT-T201501770

PATIENT
  Age: 59 Year
  Sex: Male
  Weight: 92.97 kg

DRUGS (9)
  1. H.P. ACTHAR [Suspect]
     Active Substance: CORTICOTROPIN
     Indication: CHRONIC KIDNEY DISEASE
     Dosage: 80 U/ ML;  TWICE WEEKLY
     Route: 030
     Dates: start: 201404
  2. LOSARTAN [Concomitant]
     Active Substance: LOSARTAN
     Dosage: 100 MG; QD
  3. COUMADIN [Concomitant]
     Active Substance: WARFARIN SODIUM
     Dosage: 6 MG
  4. FERROUS SULFATE [Concomitant]
     Active Substance: FERROUS SULFATE\FERROUS SULFATE, DRIED
     Dosage: 325 MG; BID
  5. FOLIC ACID. [Concomitant]
     Active Substance: FOLIC ACID
     Dosage: 1 MG. QD
  6. GLIPIZIDE. [Concomitant]
     Active Substance: GLIPIZIDE
     Dosage: 10 MG; QD
  7. CELLCEPT [Concomitant]
     Active Substance: MYCOPHENOLATE MOFETIL\MYCOPHENOLATE MOFETIL HYDROCHLORIDE
     Dosage: 500 MG
  8. FISH OIL [Concomitant]
     Active Substance: FISH OIL
     Dosage: 1000 MG
  9. AMIODARONE [Concomitant]
     Active Substance: AMIODARONE
     Dosage: 200 MG; QD

REACTIONS (1)
  - Peripheral swelling [Not Recovered/Not Resolved]

NARRATIVE: CASE EVENT DATE: 201503
